FAERS Safety Report 12353568 (Version 1)
Quarter: 2016Q2

REPORT INFORMATION
  Report Type: Spontaneous
  Country: None (occurrence: KR)
  Receive Date: 20160511
  Receipt Date: 20160511
  Transmission Date: 20160815
  Serious: Yes (Other)
  Sender: FDA-Public Use
  Company Number: KR-HOSPIRA-3282294

PATIENT
  Age: 12 Year
  Sex: Male

DRUGS (4)
  1. MELPHALAN [Suspect]
     Active Substance: MELPHALAN
     Indication: OSTEOSARCOMA
     Dosage: ON DAY-7
  2. MELPHALAN [Suspect]
     Active Substance: MELPHALAN
     Indication: OSTEOSARCOMA
     Dosage: ON DAY-6
  3. CARBOPLATIN. [Suspect]
     Active Substance: CARBOPLATIN
     Indication: OSTEOSARCOMA
     Dosage: FROM DAY-8 TO DAY-5
  4. ETOPOSIDE. [Suspect]
     Active Substance: ETOPOSIDE
     Indication: OSTEOSARCOMA

REACTIONS (1)
  - Venoocclusive liver disease [Recovered/Resolved]
